FAERS Safety Report 7004910-0 (Version None)
Quarter: 2010Q3

REPORT INFORMATION
  Report Type: 
  Country: None (occurrence: None)
  Receive Date: 20100921
  Receipt Date: 20100915
  Transmission Date: 20110219
  Serious: Yes (Other)
  Sender: FDA-Public Use
  Company Number: US-ASTRAZENECA-2009UW07848

PATIENT
  Age: 15899 Day
  Sex: Female
  Weight: 112.5 kg

DRUGS (19)
  1. SEROQUEL [Suspect]
     Indication: INSOMNIA
     Route: 048
     Dates: start: 20000101
  2. SEROQUEL [Suspect]
     Indication: BIPOLAR DISORDER
     Route: 048
     Dates: start: 20000101
  3. SEROQUEL [Suspect]
     Indication: DEPRESSION
     Route: 048
     Dates: start: 20000101
  4. SEROQUEL [Suspect]
     Indication: ANXIETY
     Route: 048
     Dates: start: 20000101
  5. SEROQUEL [Suspect]
     Dosage: 25-100 MG
     Route: 048
     Dates: start: 20020815, end: 20080710
  6. SEROQUEL [Suspect]
     Dosage: 25-100 MG
     Route: 048
     Dates: start: 20020815, end: 20080710
  7. SEROQUEL [Suspect]
     Dosage: 25-100 MG
     Route: 048
     Dates: start: 20020815, end: 20080710
  8. SEROQUEL [Suspect]
     Dosage: 25-100 MG
     Route: 048
     Dates: start: 20020815, end: 20080710
  9. SEROQUEL [Suspect]
     Route: 048
     Dates: start: 20030101, end: 20080715
  10. SEROQUEL [Suspect]
     Route: 048
     Dates: start: 20030101, end: 20080715
  11. SEROQUEL [Suspect]
     Route: 048
     Dates: start: 20030101, end: 20080715
  12. SEROQUEL [Suspect]
     Route: 048
     Dates: start: 20030101, end: 20080715
  13. LEXAPRO [Concomitant]
     Indication: BIPOLAR DISORDER
     Dates: start: 20070101
  14. CELEXA [Concomitant]
     Indication: DEPRESSION
     Dates: start: 20060101
  15. VYTORIN [Concomitant]
     Indication: BLOOD CHOLESTEROL INCREASED
  16. VYTORIN [Concomitant]
     Indication: HYPERLIPIDAEMIA
  17. ABILIFY [Concomitant]
     Dosage: 10 MG
     Dates: start: 20041201, end: 20061001
  18. GEODON [Concomitant]
     Dosage: 80-160 MG
     Dates: start: 20080201, end: 20080701
  19. AMBIEN [Concomitant]
     Dosage: 5 MG

REACTIONS (5)
  - BLOOD CHOLESTEROL INCREASED [None]
  - BREAST CANCER [None]
  - DIABETES MELLITUS [None]
  - HYPERLIPIDAEMIA [None]
  - TYPE 2 DIABETES MELLITUS [None]
